FAERS Safety Report 5858508-8 (Version None)
Quarter: 2008Q3

REPORT INFORMATION
  Report Type: 
  Country: None (occurrence: None)
  Receive Date: 20080826
  Receipt Date: 20080606
  Transmission Date: 20090109
  Serious: Yes (Other)
  Sender: FDA-Public Use
  Company Number: US-PFIZER INC-2008060635

PATIENT
  Sex: Female

DRUGS (5)
  1. SOLU-MEDROL [Suspect]
     Indication: MULTIPLE SCLEROSIS
  2. CLONIDINE [Suspect]
     Indication: HYPERTENSION
  3. BETASERON [Suspect]
     Indication: RELAPSING-REMITTING MULTIPLE SCLEROSIS
     Dosage: TEXT:8 MIU
     Route: 058
  4. IBUPROFEN [Concomitant]
  5. CORTICOSTEROIDS [Concomitant]
     Route: 042
     Dates: start: 20080101, end: 20080101

REACTIONS (7)
  - BACK PAIN [None]
  - BLOOD IRON DECREASED [None]
  - DIZZINESS [None]
  - HEADACHE [None]
  - HYPERTENSION [None]
  - MULTIPLE SCLEROSIS [None]
  - VOMITING [None]
